FAERS Safety Report 5572353-2 (Version None)
Quarter: 2007Q4

REPORT INFORMATION
  Report Type: 
  Country: None (occurrence: None)
  Receive Date: 20071219
  Receipt Date: 20071207
  Transmission Date: 20080405
  Serious: Yes (Hospitalization, Disabling)
  Sender: FDA-Public Use
  Company Number: E2090-00342-SPO-JP

PATIENT
  Age: 30 Year
  Sex: Male

DRUGS (1)
  1. ZONISAMIDE [Suspect]
     Indication: EPILEPSY
     Dosage: 400 MG, ORAL
     Route: 048
     Dates: end: 20070101

REACTIONS (10)
  - ACUTE RESPIRATORY DISTRESS SYNDROME [None]
  - CONTINUOUS HAEMODIAFILTRATION [None]
  - DISSEMINATED INTRAVASCULAR COAGULATION [None]
  - FAECAL INCONTINENCE [None]
  - FEEDING DISORDER [None]
  - HEAT STROKE [None]
  - MALAISE [None]
  - MULTI-ORGAN FAILURE [None]
  - RENAL FAILURE [None]
  - URINARY INCONTINENCE [None]
